FAERS Safety Report 4823880-4 (Version None)
Quarter: 2005Q4

REPORT INFORMATION
  Report Type: 
  Country: None (occurrence: None)
  Receive Date: 20051107
  Receipt Date: 20051026
  Transmission Date: 20060501
  Serious: Yes (Hospitalization)
  Sender: FDA-Public Use
  Company Number: 235150K05USA

PATIENT
  Age: 42 Year
  Sex: Female

DRUGS (2)
  1. REBIF [Suspect]
     Indication: MULTIPLE SCLEROSIS
     Dosage: 44 MCG, 3 IN 1 WEEKS, SUBCUTANEOUS
     Route: 058
     Dates: start: 20041026
  2. ANTIDEPRESSANT (ANTIDEPRESSANTS) [Concomitant]

REACTIONS (6)
  - BURNING SENSATION [None]
  - COGNITIVE DISORDER [None]
  - DRUG INEFFECTIVE [None]
  - FACIAL PAIN [None]
  - HEADACHE [None]
  - HYPOAESTHESIA [None]
